FAERS Safety Report 7700013-8 (Version None)
Quarter: 2011Q3

REPORT INFORMATION
  Report Type: 
  Country: None (occurrence: None)
  Receive Date: 20110815
  Receipt Date: 20110801
  Transmission Date: 20111222
  Serious: Yes (Other)
  Sender: FDA-Public Use
  Company Number: 998580

PATIENT
  Sex: Female

DRUGS (1)
  1. LEUCOVORIN CALCIUM [Suspect]
     Indication: COLON CANCER

REACTIONS (3)
  - VISUAL ACUITY REDUCED [None]
  - VISION BLURRED [None]
  - VITREOUS FLOATERS [None]
